FAERS Safety Report 4624690-3 (Version None)
Quarter: 2005Q1

REPORT INFORMATION
  Report Type: 
  Country: None (occurrence: None)
  Receive Date: 20050107
  Receipt Date: 20040922
  Transmission Date: 20050727
  Serious: No
  Sender: FDA-Public Use
  Company Number: 234582K04USA

PATIENT
  Age: 29 Year
  Sex: Female

DRUGS (1)
  1. REBIF [Suspect]
     Indication: MULTIPLE SCLEROSIS
     Dates: start: 20040609

REACTIONS (6)
  - INJECTION SITE ERYTHEMA [None]
  - INJECTION SITE PAIN [None]
  - INJECTION SITE RASH [None]
  - INJECTION SITE REACTION [None]
  - PAIN IN EXTREMITY [None]
  - RASH ERYTHEMATOUS [None]
